FAERS Safety Report 19025325 (Version 3)
Quarter: 2021Q2

REPORT INFORMATION
  Report Type: Report from Study
  Country: DE (occurrence: DE)
  Receive Date: 20210318
  Receipt Date: 20210407
  Transmission Date: 20210717
  Serious: Yes (Death, Other)
  Sender: FDA-Public Use
  Company Number: NVSC2021DE062601

PATIENT

DRUGS (5)
  1. TRAMETINIB [Suspect]
     Active Substance: TRAMETINIB
     Indication: METASTATIC MALIGNANT MELANOMA
     Dosage: 2 MG, QD (1?0?0)
     Route: 048
     Dates: end: 201708
  2. TAFINLAR [Suspect]
     Active Substance: DABRAFENIB MESYLATE
     Dosage: 150 MG, BID (1?0?1)
     Route: 048
     Dates: start: 20170811, end: 20170929
  3. TRAMETINIB [Suspect]
     Active Substance: TRAMETINIB
     Dosage: 2 MG, QD (1?0?0)
     Route: 048
     Dates: start: 20170811, end: 20170929
  4. TAFINLAR [Suspect]
     Active Substance: DABRAFENIB MESYLATE
     Indication: METASTATIC MALIGNANT MELANOMA
     Dosage: 150 MG, BID (1?0?1)
     Route: 048
     Dates: end: 201708
  5. DENOSUMAB [Concomitant]
     Active Substance: DENOSUMAB
     Indication: PRODUCT USED FOR UNKNOWN INDICATION
     Dosage: 120 MG/ 12 MONTHS
     Route: 065

REACTIONS (6)
  - Colitis [Unknown]
  - Malignant neoplasm progression [Fatal]
  - Nausea [Unknown]
  - Metastatic malignant melanoma [Fatal]
  - Quadriplegia [Unknown]
  - Coma [Unknown]

NARRATIVE: CASE EVENT DATE: 20170828
